FAERS Safety Report 4560720-5 (Version None)
Quarter: 2005Q1

REPORT INFORMATION
  Report Type: 
  Country: None (occurrence: None)
  Receive Date: 20050121
  Receipt Date: 20050112
  Transmission Date: 20050727
  Serious: Yes (Other)
  Sender: FDA-Public Use
  Company Number: 2005-01-1056

PATIENT
  Age: 2 Year
  Sex: Female

DRUGS (1)
  1. GARAMYCIN [Suspect]
     Dosage: 27 MG INTRAVENOUS
     Route: 042

REACTIONS (3)
  - PYREXIA [None]
  - RESPIRATORY DISTRESS [None]
  - TREMOR [None]
